FAERS Safety Report 6189035-9 (Version None)
Quarter: 2009Q2

REPORT INFORMATION
  Report Type: 
  Country: None (occurrence: None)
  Receive Date: 20090513
  Receipt Date: 20090506
  Transmission Date: 20091009
  Serious: Yes (Other)
  Sender: FDA-Public Use
  Company Number: US-ELI_LILLY_AND_COMPANY-US200905001188

PATIENT
  Sex: Female

DRUGS (3)
  1. HUMULIN 70/30 [Suspect]
  2. HUMULIN 70/30 [Suspect]
  3. HUMULIN 70/30 [Suspect]

REACTIONS (2)
  - BLINDNESS UNILATERAL [None]
  - HYPOACUSIS [None]
